FAERS Safety Report 12266530 (Version 2)
Quarter: 2016Q2

REPORT INFORMATION
  Report Type: Report from Study
  Country: KR (occurrence: KR)
  Receive Date: 20160414
  Receipt Date: 20160510
  Transmission Date: 20160815
  Serious: Yes (Hospitalization)
  Sender: FDA-Public Use
  Company Number: KR-ALEXION-A201602530

PATIENT
  Age: 71 Year
  Sex: Male
  Weight: 52.2 kg

DRUGS (3)
  1. SOLIRIS [Suspect]
     Active Substance: ECULIZUMAB
     Dosage: 900 MG, Q2W
     Route: 042
     Dates: start: 20140828
  2. ASPIRIN                            /00002701/ [Concomitant]
     Active Substance: ASPIRIN
     Indication: PRINZMETAL ANGINA
     Dosage: 100 MG, UNK
     Route: 048
     Dates: start: 20100526
  3. SOLIRIS [Suspect]
     Active Substance: ECULIZUMAB
     Indication: PAROXYSMAL NOCTURNAL HAEMOGLOBINURIA
     Dosage: 600 MG, QW
     Route: 042
     Dates: start: 20140729, end: 20140819

REACTIONS (1)
  - Tenosynovitis [Recovered/Resolved with Sequelae]

NARRATIVE: CASE EVENT DATE: 20160220
